FAERS Safety Report 22180821 (Version 2)
Quarter: 2023Q2

REPORT INFORMATION
  Report Type: Spontaneous
  Country: US (occurrence: US)
  Receive Date: 20230406
  Receipt Date: 20230515
  Transmission Date: 20230721
  Serious: No
  Sender: FDA-Public Use
  Company Number: US-RISINGPHARMA-US-2023RISSPO00058

PATIENT
  Age: 40 Year
  Sex: Female
  Weight: 170 kg

DRUGS (5)
  1. CROMOLYN SODIUM [Suspect]
     Active Substance: CROMOLYN SODIUM
     Indication: Mast cell activation syndrome
     Route: 048
     Dates: start: 20230201, end: 20230321
  2. CROMOLYN SODIUM [Suspect]
     Active Substance: CROMOLYN SODIUM
  3. CROMOLYN SODIUM [Suspect]
     Active Substance: CROMOLYN SODIUM
  4. PROMETHAZINE [Concomitant]
     Active Substance: PROMETHAZINE HYDROCHLORIDE
     Indication: Product used for unknown indication
     Route: 065
  5. KETOTIFEN [Concomitant]
     Active Substance: KETOTIFEN
     Indication: Product used for unknown indication
     Route: 065

REACTIONS (3)
  - Product taste abnormal [Unknown]
  - Taste disorder [Unknown]
  - Drug ineffective [Unknown]

NARRATIVE: CASE EVENT DATE: 20230101
